FAERS Safety Report 5500082-X (Version None)
Quarter: 2007Q4

REPORT INFORMATION
  Report Type: 
  Country: None (occurrence: None)
  Receive Date: 20071024
  Receipt Date: 20071017
  Transmission Date: 20080405
  Serious: Yes (Death)
  Sender: FDA-Public Use
  Company Number: CZ-JNJFOC-20070701493

PATIENT
  Age: 71 Year
  Sex: Male
  Weight: 81 kg

DRUGS (4)
  1. DECITABINE (DECITABINE) LYOPHILIZED POWDER [Suspect]
     Indication: MYELODYSPLASTIC SYNDROME
     Dosage: 270 MG, INTRAVENOUS; 252 MG, INTRAVENOUS
     Route: 042
     Dates: start: 20061011, end: 20070106
  2. DECITABINE (DECITABINE) LYOPHILIZED POWDER [Suspect]
     Indication: MYELODYSPLASTIC SYNDROME
     Dosage: 270 MG, INTRAVENOUS; 252 MG, INTRAVENOUS
     Route: 042
     Dates: end: 20070108
  3. AMINOPHYLLINE [Concomitant]
  4. OMEPRAZOLUM (OMEPRAZOLE) [Concomitant]

REACTIONS (12)
  - BRONCHOPNEUMONIA [None]
  - CONDITION AGGRAVATED [None]
  - CONTUSION [None]
  - DRUG RESISTANCE [None]
  - DRUG TOXICITY [None]
  - FALL [None]
  - HAEMORRHAGE [None]
  - HEAD INJURY [None]
  - LEUKOPENIA [None]
  - NEUTROPENIA [None]
  - NO THERAPEUTIC RESPONSE [None]
  - THROMBOCYTOPENIA [None]
